FAERS Safety Report 9407848 (Version 1)
Quarter: 2013Q2

REPORT INFORMATION
  Report Type: Spontaneous
  Country: US (occurrence: None)
  Receive Date: 20130425
  Receipt Date: 20130425
  Transmission Date: 20140414
  Serious: Yes (Hospitalization)
  Sender: FDA-Public Use
  Company Number: 2013SGN00194

PATIENT
  Age: 58 Year
  Sex: Male

DRUGS (16)
  1. BRENTUXIMAB VEDOTIN (BRENTUXIMAB VEDOTIN) INJECTION [Suspect]
     Indication: HODGKIN^S DISEASE
     Dates: start: 20120615, end: 20120727
  2. IFOSFAMIDE (IFOSFAMIDE) [Suspect]
     Indication: HODGKIN^S DISEASE
     Dates: start: 20120810, end: 20120903
  3. CARBOPLATIN (CARBOPLATIN) [Suspect]
     Indication: HODGKIN^S DISEASE
     Dates: start: 20120810, end: 20120903
  4. ETOPOSIDE (ETOPOSIDE PHOSPHATE) [Suspect]
     Indication: HODGKIN^S DISEASE
     Dates: start: 20120810, end: 20120903
  5. MESNA (MESNA) [Suspect]
  6. APREPITANT (APREPITANT) [Concomitant]
  7. CALCIUM (CALCIUM GLUCONATE) [Concomitant]
  8. DEXAMETHASONE (DEXAMETHASONE SODIUM PHOSPHATE) [Concomitant]
  9. DOCUSATE SODIUM (DOCUSATE SODIUM) [Concomitant]
  10. METHYLPREDNISOLONE (METHYLPREDNISOLONE) [Concomitant]
  11. METOCLOPRAMIDE (METOCLOPRAMIDE HYDROCHLORIDE) [Concomitant]
  12. MULTIVITAMINS PLUS IRON (FERROUS SULFATE, VITAMINS NOS) [Concomitant]
  13. ONDANSETRON (ONDANSETRON) [Concomitant]
  14. OXYCODONE HYDROCHLORIDE (OXYCODONE HYDROCHLORIDE) [Concomitant]
  15. SENNA (SENNA ALEXANDRINA) [Concomitant]
  16. VITAMIN D (VITAMIN D) [Concomitant]

REACTIONS (6)
  - Febrile neutropenia [None]
  - Anaemia [None]
  - Haemorrhoids [None]
  - Platelet count decreased [None]
  - Constipation [None]
  - Hyperhidrosis [None]
